FAERS Safety Report 9357509 (Version 1)
Quarter: 2013Q2

REPORT INFORMATION
  Report Type: Report from Study
  Country: AR (occurrence: AR)
  Receive Date: 20130620
  Receipt Date: 20130620
  Transmission Date: 20140414
  Serious: Yes (Other)
  Sender: FDA-Public Use
  Company Number: PHHY2013AR062868

PATIENT
  Age: 95 Year
  Sex: Female

DRUGS (2)
  1. EXELON PATCH [Suspect]
     Indication: SENILE DEMENTIA
     Dosage: 4.6 MG, DAILY
     Route: 062
  2. QUETIAPINE [Concomitant]
     Indication: SENILE DEMENTIA
     Dosage: UNK UKN, UNK
     Route: 065

REACTIONS (3)
  - Fall [Recovering/Resolving]
  - Joint dislocation [Recovering/Resolving]
  - Upper limb fracture [Recovering/Resolving]
